FAERS Safety Report 8315170-2 (Version None)
Quarter: 2012Q2

REPORT INFORMATION
  Report Type: 
  Country: None (occurrence: None)
  Receive Date: 20120426
  Receipt Date: 20120417
  Transmission Date: 20120825
  Serious: Yes (Life-Threatening, Hospitalization, Disabling)
  Sender: FDA-Public Use
  Company Number: JP-GLAXOSMITHKLINE-B0719425A

PATIENT
  Sex: Female
  Weight: 53 kg

DRUGS (4)
  1. CARBOPLATIN + PACLITAXEL [Concomitant]
     Dates: start: 20090401, end: 20100401
  2. HYCAMTIN [Suspect]
     Indication: OVARIAN CANCER RECURRENT
     Dosage: 475MG PER DAY
     Route: 042
     Dates: start: 20110426, end: 20110430
  3. PACLITAXEL [Concomitant]
     Dates: start: 20101101, end: 20101201
  4. UNKNOWN [Concomitant]
     Dates: start: 20101201, end: 20110301

REACTIONS (6)
  - PLATELET COUNT DECREASED [None]
  - FEMALE GENITAL TRACT FISTULA [None]
  - RED BLOOD CELL COUNT DECREASED [None]
  - WHITE BLOOD CELL COUNT DECREASED [None]
  - ILEUS [None]
  - PYREXIA [None]
